FAERS Safety Report 9740168 (Version 10)
Quarter: 2015Q3

REPORT INFORMATION
  Report Type: Report from Study
  Country: DE (occurrence: DE)
  Receive Date: 20131209
  Receipt Date: 20150812
  Transmission Date: 20151125
  Serious: Yes (Hospitalization)
  Sender: FDA-Public Use
  Company Number: DE-BAYER-2013-149324

PATIENT
  Age: 76 Year
  Sex: Male
  Weight: 83 kg

DRUGS (12)
  1. CARMEN [Concomitant]
     Active Substance: LERCANIDIPINE
     Dosage: TOTAL DAILY DOSE 40 MG
     Dates: start: 2001
  2. OBSIDAN [PROPRANOLOL HYDROCHLORIDE] [Concomitant]
     Dosage: TOTAL DAILY DOSE 25 MG
     Dates: start: 201309
  3. SIMVABETA [Concomitant]
     Active Substance: SIMVASTATIN
     Dosage: TOTAL DAILY DOSE 20 MG
     Dates: start: 2010
  4. LIPROLOG [Concomitant]
     Active Substance: INSULIN LISPRO
     Dosage: TOTAL DAILY DOSE 25 IU
     Dates: start: 2009
  5. TORASEMID [Concomitant]
     Active Substance: TORSEMIDE
     Dosage: TOTAL DAILY DOSE 30 MG
     Dates: start: 2001
  6. NEXAVAR [Suspect]
     Active Substance: SORAFENIB
     Indication: HEPATOCELLULAR CARCINOMA
     Dosage: UNK
     Dates: end: 20131029
  7. PRETERAX [Concomitant]
     Active Substance: INDAPAMIDE\PERINDOPRIL
     Dosage: TOTAL DAILY DOSE 2.5 MG
     Dates: start: 201309
  8. VALSARTAN. [Concomitant]
     Active Substance: VALSARTAN
     Dosage: TOTAL DAILY DOSE 320 MG
     Dates: start: 201309
  9. OMEPRAZOL [Concomitant]
     Active Substance: OMEPRAZOLE
     Dosage: TOTAL DAILY DOSE 40 MG
     Dates: start: 2010
  10. FALITHROM [Concomitant]
     Active Substance: PHENPROCOUMON
     Dosage: TOTAL DAILY DOSE 1.5 MG
     Dates: start: 2009
  11. NEXAVAR [Suspect]
     Active Substance: SORAFENIB
     Indication: HEPATOCELLULAR CARCINOMA
     Dosage: 400 MG, OTHER DAILY DOSE
     Route: 048
     Dates: start: 20131010
  12. SPIRONOLACTONE. [Concomitant]
     Active Substance: SPIRONOLACTONE
     Dosage: TOTAL DAILY DOSE 50 MG
     Dates: start: 201309

REACTIONS (3)
  - Peripheral ischaemia [Recovered/Resolved]
  - Overdose [Recovered/Resolved]
  - Anaemia [Recovered/Resolved]

NARRATIVE: CASE EVENT DATE: 20131029
